FAERS Safety Report 19937323 (Version 4)
Quarter: 2022Q1

REPORT INFORMATION
  Report Type: Report from Study
  Country: ES (occurrence: ES)
  Receive Date: 20211010
  Receipt Date: 20220105
  Transmission Date: 20220423
  Serious: Yes (Hospitalization)
  Sender: FDA-Public Use
  Company Number: ES-ABBVIE-21K-144-4111310-00

PATIENT
  Sex: Female
  Weight: 78 kg

DRUGS (2)
  1. CARBIDOPA\LEVODOPA [Suspect]
     Active Substance: CARBIDOPA\LEVODOPA
     Indication: Parkinson^s disease
     Route: 050
     Dates: start: 20180705
  2. CARBIDOPA\LEVODOPA [Suspect]
     Active Substance: CARBIDOPA\LEVODOPA

REACTIONS (10)
  - Aspiration [Recovered/Resolved]
  - Pneumonia [Unknown]
  - Hypophagia [Unknown]
  - Speech disorder [Unknown]
  - Bedridden [Unknown]
  - Dysphagia [Not Recovered/Not Resolved]
  - Parkinson^s disease [Unknown]
  - General physical health deterioration [Unknown]
  - Dyspnoea [Recovered/Resolved]
  - Unevaluable event [Unknown]

NARRATIVE: CASE EVENT DATE: 20210101
